FAERS Safety Report 6525024-X (Version None)
Quarter: 2010Q1

REPORT INFORMATION
  Report Type: 
  Country: None (occurrence: None)
  Receive Date: 20100104
  Receipt Date: 20091221
  Transmission Date: 20100710
  Serious: Yes (Other)
  Sender: FDA-Public Use
  Company Number: US-PFIZER INC-2009313249

PATIENT

DRUGS (1)
  1. NEURONTIN [Suspect]
     Dosage: UNK

REACTIONS (4)
  - DRUG DISPENSING ERROR [None]
  - NERVOUS SYSTEM DISORDER [None]
  - THIRST [None]
  - TYPE 1 DIABETES MELLITUS [None]
